FAERS Safety Report 7497886-3 (Version None)
Quarter: 2011Q2

REPORT INFORMATION
  Report Type: 
  Country: None (occurrence: None)
  Receive Date: 20110524
  Receipt Date: 20110425
  Transmission Date: 20111010
  Serious: Yes (Other)
  Sender: FDA-Public Use
  Company Number: US-BAYER-201036355NA

PATIENT
  Age: 22 Year
  Sex: Female
  Weight: 63.492 kg

DRUGS (7)
  1. PROPRANOLOL [Concomitant]
     Indication: CARDIAC DISORDER
  2. YAZ [Suspect]
     Indication: CONTRACEPTION
     Route: 048
     Dates: start: 20010101
  3. PROAIR HFA [Concomitant]
     Indication: ASTHMA
  4. YASMIN [Suspect]
     Indication: CONTRACEPTION
     Route: 048
     Dates: start: 20010101
  5. ALBUTEROL SULFATE AUTOHALER [Concomitant]
     Indication: ASTHMA
  6. DROSPIRENONE AND ETHINYL ESTRADIOL [Suspect]
     Indication: PRODUCT USED FOR UNKNOWN INDICATION
     Route: 048
     Dates: start: 20010101
  7. METROPOLOL ER [Concomitant]
     Indication: CARDIAC DISORDER

REACTIONS (2)
  - THROMBOSIS [None]
  - GALLBLADDER DISORDER [None]
